FAERS Safety Report 6865743-9 (Version None)
Quarter: 2010Q3

REPORT INFORMATION
  Report Type: 
  Country: None (occurrence: None)
  Receive Date: 20100721
  Receipt Date: 20080531
  Transmission Date: 20110219
  Serious: Yes (Other)
  Sender: FDA-Public Use
  Company Number: US-PFIZER INC-2008038539

PATIENT
  Sex: Female
  Weight: 63.5 kg

DRUGS (1)
  1. CHANTIX [Suspect]
     Indication: NICOTINE DEPENDENCE
     Route: 048
     Dates: start: 20080414, end: 20080419

REACTIONS (9)
  - ABNORMAL DREAMS [None]
  - AFFECTIVE DISORDER [None]
  - ANHEDONIA [None]
  - ANXIETY [None]
  - COGNITIVE DISORDER [None]
  - DEPRESSED MOOD [None]
  - MENTAL IMPAIRMENT [None]
  - SLEEP DISORDER [None]
  - SUICIDAL IDEATION [None]
